FAERS Safety Report 15184566 (Version 2)
Quarter: 2018Q4

REPORT INFORMATION
  Report Type: Spontaneous
  Country: US (occurrence: US)
  Receive Date: 20180723
  Receipt Date: 20181018
  Transmission Date: 20190204
  Serious: No
  Sender: FDA-Public Use
  Company Number: US-AMGEN-USASP2018083835

PATIENT
  Age: 66 Year
  Sex: Male
  Weight: 113.38 kg

DRUGS (1)
  1. REPATHA [Suspect]
     Active Substance: EVOLOCUMAB
     Indication: PRODUCT USED FOR UNKNOWN INDICATION
     Dosage: 420 MG, QMO
     Route: 023

REACTIONS (3)
  - Incorrect route of product administration [Unknown]
  - Injection site pain [Unknown]
  - Wrong technique in product usage process [Unknown]
